FAERS Safety Report 13962022 (Version 1)
Quarter: 2017Q3

REPORT INFORMATION
  Report Type: Spontaneous
  Country: AU (occurrence: AU)
  Receive Date: 20170912
  Receipt Date: 20170912
  Transmission Date: 20171128
  Serious: Yes (Life-Threatening, Hospitalization, Other)
  Sender: FDA-Public Use
  Company Number: AU-ABBVIE-17P-008-2098117-00

PATIENT
  Age: 45 Year
  Sex: Male

DRUGS (5)
  1. VALPROATE SODIUM. [Suspect]
     Active Substance: VALPROATE SODIUM
     Indication: PRODUCT USED FOR UNKNOWN INDICATION
     Route: 048
  2. RISPERIDONE. [Suspect]
     Active Substance: RISPERIDONE
     Indication: PRODUCT USED FOR UNKNOWN INDICATION
     Route: 048
  3. CLOZARIL [Suspect]
     Active Substance: CLOZAPINE
     Indication: PSYCHOTIC DISORDER
     Route: 048
  4. OLANZAPINE. [Suspect]
     Active Substance: OLANZAPINE
     Indication: PRODUCT USED FOR UNKNOWN INDICATION
     Route: 048
  5. CLOZARIL [Suspect]
     Active Substance: CLOZAPINE
     Route: 048

REACTIONS (10)
  - Hyponatraemia [Recovering/Resolving]
  - White blood cell count decreased [Unknown]
  - Extrapyramidal disorder [Recovered/Resolved]
  - Muscle rigidity [Unknown]
  - Generalised tonic-clonic seizure [Recovered/Resolved]
  - Postictal state [Unknown]
  - Neutropenia [Recovered/Resolved]
  - Loss of consciousness [Unknown]
  - Pneumonia aspiration [Recovered/Resolved]
  - Polydipsia psychogenic [Not Recovered/Not Resolved]

NARRATIVE: CASE EVENT DATE: 20140321
